FAERS Safety Report 16076886 (Version 3)
Quarter: 2019Q2

REPORT INFORMATION
  Report Type: Report from Study
  Country: US (occurrence: US)
  Receive Date: 20190315
  Receipt Date: 20190521
  Transmission Date: 20190711
  Serious: No
  Sender: FDA-Public Use
  Company Number: PHEH2019US010216

PATIENT
  Sex: Male

DRUGS (1)
  1. ENTRESTO [Suspect]
     Active Substance: SACUBITRIL\VALSARTAN
     Indication: CARDIAC FAILURE
     Dosage: UNK
     Route: 048

REACTIONS (8)
  - Hypoacusis [Unknown]
  - Therapeutic response unexpected [Unknown]
  - Influenza [Unknown]
  - Nasopharyngitis [Unknown]
  - Swelling face [Unknown]
  - Pyrexia [Unknown]
  - Chills [Unknown]
  - Drug hypersensitivity [Unknown]
